APPROVED DRUG PRODUCT: GRISEOFULVIN, ULTRAMICROSIZE
Active Ingredient: GRISEOFULVIN, ULTRAMICROSIZE
Strength: 250MG
Dosage Form/Route: TABLET;ORAL
Application: A204371 | Product #002 | TE Code: AB
Applicant: MOUNTAIN LLC
Approved: Jan 9, 2014 | RLD: No | RS: Yes | Type: RX